FAERS Safety Report 4886600-3 (Version None)
Quarter: 2006Q1

REPORT INFORMATION
  Report Type: 
  Country: None (occurrence: None)
  Receive Date: 20060119
  Receipt Date: 20060106
  Transmission Date: 20060701
  Serious: Yes (Other)
  Sender: FDA-Public Use
  Company Number: 2006P1000035

PATIENT
  Age: 55 Year
  Sex: Male

DRUGS (8)
  1. RETEPLASE (RETEPLASE) [Suspect]
  2. HEPARIN [Suspect]
  3. TIROFIBAN (TIROFIBAN) [Suspect]
  4. ASPIRIN [Suspect]
  5. CLOPIDOGREL BISULFATE [Suspect]
  6. FLOMAX [Concomitant]
  7. FINASTERIDE [Concomitant]
  8. DILTIAZEM HCL [Concomitant]

REACTIONS (1)
  - THROMBOCYTOPENIA [None]
